FAERS Safety Report 7948519-0 (Version None)
Quarter: 2011Q4

REPORT INFORMATION
  Report Type: 
  Country: None (occurrence: None)
  Receive Date: 20111128
  Receipt Date: 20111128
  Transmission Date: 20120403
  Serious: No
  Sender: FDA-Public Use
  Company Number: None

PATIENT
  Age: 56 Year
  Sex: Male
  Weight: 85.1 kg

DRUGS (2)
  1. RIBAVIRIN [Suspect]
     Indication: HEPATITIS C
     Dosage: 1200 MG BID PO
     Route: 048
     Dates: start: 20110917
  2. TELAPREVIR [Suspect]
     Indication: HEPATITIS C
     Dosage: 750 MG TID PO
     Route: 048
     Dates: start: 20111017

REACTIONS (7)
  - PRURITUS [None]
  - ANAEMIA [None]
  - ANORECTAL DISCOMFORT [None]
  - LEUKOPENIA [None]
  - DEPRESSION [None]
  - URTICARIA [None]
  - ANGINA PECTORIS [None]
